FAERS Safety Report 19429478 (Version 1)
Quarter: 2021Q2

REPORT INFORMATION
  Report Type: Report from Study
  Country: FR (occurrence: FR)
  Receive Date: 20210617
  Receipt Date: 20210617
  Transmission Date: 20210717
  Serious: Yes (Hospitalization)
  Sender: FDA-Public Use
  Company Number: FR-ROCHE-2847600

PATIENT
  Age: 51 Year
  Sex: Male
  Weight: 90 kg

DRUGS (2)
  1. ATEZOLIZUMAB. [Suspect]
     Active Substance: ATEZOLIZUMAB
     Indication: BLADDER CANCER
     Dosage: ON 03/JUN/2021, RECEIVED LAST DOSE OF ATEZOLIZUMAB PRIOR TO ADVERSE EVENT?CUMULATIVE DOSE 4800 MG
     Route: 041
     Dates: start: 20210401
  2. BCG [Suspect]
     Active Substance: BCG VACCINE
     Indication: BLADDER CANCER
     Dosage: ON 03/JUN/2021, RECEIVED LAST DOSE OF BCG VACCINE PRIOR TO ADVERSE EVENT
     Route: 043
     Dates: start: 20210401

REACTIONS (2)
  - Colitis [Not Recovered/Not Resolved]
  - Weight decreased [Not Recovered/Not Resolved]

NARRATIVE: CASE EVENT DATE: 20210604
